FAERS Safety Report 21645114 (Version 1)
Quarter: 2022Q4

REPORT INFORMATION
  Report Type: Spontaneous
  Country: FR (occurrence: FR)
  Receive Date: 20221125
  Receipt Date: 20221125
  Transmission Date: 20230112
  Serious: Yes (Life-Threatening)
  Sender: FDA-Public Use
  Company Number: None

PATIENT
  Age: 90 Year
  Sex: Female
  Weight: 60.5 kg

DRUGS (4)
  1. ALPRAZOLAM [Suspect]
     Active Substance: ALPRAZOLAM
     Indication: Intentional overdose
     Dosage: UNIT DOSE : 30 DF, DURATION : 1 DAY
     Route: 065
     Dates: start: 20221004, end: 20221004
  2. LERCANIDIPINE HYDROCHLORIDE [Suspect]
     Active Substance: LERCANIDIPINE HYDROCHLORIDE
     Indication: Intentional overdose
     Dosage: LERCANIDIPINE (CHLORHYDRATE DE) , UNIT DOSE :500 MG , DURATION : 1 DAY
     Dates: start: 20221004, end: 20221004
  3. ACETAMINOPHEN [Suspect]
     Active Substance: ACETAMINOPHEN
     Indication: Intentional overdose
     Dosage: UNIT DOSE : 28 GRAM , DURATION : 1 DAY
     Route: 065
     Dates: start: 20221004, end: 20221004
  4. SERTRALINE [Suspect]
     Active Substance: SERTRALINE HYDROCHLORIDE
     Indication: Intentional overdose
     Dosage: UNIT DOSE : 2000 MG , DURATION : 1 DAY
     Route: 065
     Dates: start: 20221004, end: 20221004

REACTIONS (3)
  - Poisoning deliberate [Recovered/Resolved]
  - Hepatic cytolysis [Recovering/Resolving]
  - Coma [Recovered/Resolved]

NARRATIVE: CASE EVENT DATE: 20221004
